FAERS Safety Report 7268176-9 (Version None)
Quarter: 2011Q1

REPORT INFORMATION
  Report Type: 
  Country: None (occurrence: None)
  Receive Date: 20110201
  Receipt Date: 20100914
  Transmission Date: 20110831
  Serious: Yes (Congenital Anomaly, Other)
  Sender: FDA-Public Use
  Company Number: PHHO2010ZM14276

PATIENT
  Sex: Male
  Weight: 3.1 kg

DRUGS (1)
  1. ARTEMETHER,BENFLUMETOL [Suspect]
     Indication: MALARIA
     Dosage: MATERNAL DOSE: 8 TABLETS/DAY
     Route: 064

REACTIONS (4)
  - CLEFT LIP [None]
  - CLEFT PALATE [None]
  - DRUG EXPOSURE DURING PREGNANCY [None]
  - CHOKING [None]
